FAERS Safety Report 5960425-X (Version None)
Quarter: 2008Q4

REPORT INFORMATION
  Report Type: 
  Country: None (occurrence: None)
  Receive Date: 20081112
  Receipt Date: 20080307
  Transmission Date: 20090506
  Serious: Yes (Life-Threatening)
  Sender: FDA-Public Use
  Company Number: US-JNJFOC-20080400815

PATIENT
  Age: 56 Year
  Sex: Female
  Weight: 87.1 kg

DRUGS (3)
  1. MOTRIN [Suspect]
     Indication: DRUG USE FOR UNKNOWN INDICATION
     Dosage: 3 DOSE(S)
  2. LYRICA [Suspect]
     Indication: PAIN
     Dosage: 50 MG, 2 IN 1 DAY, ORAL ; 50 MG, 3 IN 1 DAY, ORAL
     Route: 048
     Dates: start: 20071114, end: 20071128
  3. LYRICA [Suspect]
     Indication: PAIN
     Dosage: 50 MG, 2 IN 1 DAY, ORAL ; 50 MG, 3 IN 1 DAY, ORAL
     Route: 048
     Dates: start: 20071129, end: 20071215

REACTIONS (1)
  - PLATELET COUNT DECREASED [None]
